FAERS Safety Report 6610933-3 (Version None)
Quarter: 2010Q1

REPORT INFORMATION
  Report Type: 
  Country: None (occurrence: None)
  Receive Date: 20100222
  Receipt Date: 20100212
  Transmission Date: 20100710
  Serious: No
  Sender: FDA-Public Use
  Company Number: 2010000936

PATIENT
  Sex: Male

DRUGS (1)
  1. FENTORA [Suspect]
     Indication: PROCEDURAL PAIN
     Dosage: BU 2 M

REACTIONS (2)
  - CONTRAINDICATION TO MEDICAL TREATMENT [None]
  - DRUG PRESCRIBING ERROR [None]
